FAERS Safety Report 7964264 (Version 3)
Quarter: 2012Q4

REPORT INFORMATION
  Report Type: Report from Study
  Country: DE (occurrence: DE)
  Receive Date: 20110527
  Receipt Date: 20121016
  Transmission Date: 20130627
  Serious: Yes (Hospitalization)
  Sender: FDA-Public Use
  Company Number: DE-ABBOTT-11P-062-0728434-00

PATIENT
  Age: 61 Year
  Sex: Male
  Weight: 65.5 kg

DRUGS (3)
  1. ZEMPLAR [Suspect]
     Indication: HYPERPARATHYROIDISM SECONDARY
     Dates: start: 20110319, end: 20110801
  2. ZEMPLAR [Suspect]
     Dates: start: 20110802
  3. RAMIPRIL [Concomitant]
     Indication: PRODUCT USED FOR UNKNOWN INDICATION
     Dosage: 2.5 mg daily
     Dates: start: 20110519

REACTIONS (1)
  - Diabetic foot [Recovered/Resolved]
